FAERS Safety Report 21116847 (Version 1)
Quarter: 2022Q3

REPORT INFORMATION
  Report Type: Spontaneous
  Country: GB (occurrence: GB)
  Receive Date: 20220722
  Receipt Date: 20220722
  Transmission Date: 20221027
  Serious: Yes (Other)
  Sender: FDA-Public Use
  Company Number: GB-TEVA-2022-GB-2056416

PATIENT
  Age: 5 Year
  Sex: Female

DRUGS (18)
  1. PREDNISOLONE [Suspect]
     Active Substance: PREDNISOLONE
     Indication: Panniculitis
     Route: 065
     Dates: start: 202007
  2. PREDNISOLONE [Suspect]
     Active Substance: PREDNISOLONE
     Indication: Panniculitis
     Route: 065
     Dates: start: 2020
  3. PREDNISOLONE [Suspect]
     Active Substance: PREDNISOLONE
     Indication: Panniculitis
     Dosage: UNSPECIFIED HIGHER DOSE
     Route: 065
     Dates: start: 202010
  4. PREDNISOLONE [Suspect]
     Active Substance: PREDNISOLONE
     Indication: Panniculitis
     Dosage: 40 MG
     Route: 065
     Dates: start: 202010, end: 202010
  5. PREDNISOLONE [Suspect]
     Active Substance: PREDNISOLONE
     Indication: Panniculitis
     Route: 065
     Dates: start: 202011
  6. PREDNISOLONE [Suspect]
     Active Substance: PREDNISOLONE
     Indication: Panniculitis
     Dosage: DOSE DECREASED
     Route: 065
     Dates: start: 202011
  7. PREDNISOLONE [Suspect]
     Active Substance: PREDNISOLONE
     Indication: Panniculitis
     Route: 065
     Dates: start: 202011
  8. PREDNISOLONE [Suspect]
     Active Substance: PREDNISOLONE
     Indication: Panniculitis
     Dosage: UNSPECIFIED DECREASED DOSE IN END OF DECEMBER 2020
     Route: 065
     Dates: start: 202012
  9. PREDNISOLONE [Suspect]
     Active Substance: PREDNISOLONE
     Dosage: 20 MILLIGRAM DAILY;
     Route: 065
     Dates: start: 202101, end: 202102
  10. VALPROATE SODIUM [Concomitant]
     Active Substance: VALPROATE SODIUM
     Indication: Aicardi-Goutieres syndrome
     Route: 065
  11. BACLOFEN [Concomitant]
     Active Substance: BACLOFEN
     Indication: Aicardi-Goutieres syndrome
     Dosage: THREE TIMES DAILY
     Route: 065
  12. ASPIRIN [Concomitant]
     Active Substance: ASPIRIN
     Indication: Product used for unknown indication
     Route: 065
     Dates: start: 202006
  13. LANSOPRAZOLE [Concomitant]
     Active Substance: LANSOPRAZOLE
     Indication: Product used for unknown indication
     Route: 065
     Dates: start: 202006
  14. FLUCLOXACILLIN [Concomitant]
     Active Substance: FLUCLOXACILLIN
     Indication: Rash
     Route: 065
     Dates: start: 20200601
  15. Hydrocortisone acetate/fusidic acid [Concomitant]
     Indication: Rash
     Route: 061
     Dates: start: 20200601
  16. RUXOLITINIB [Concomitant]
     Active Substance: RUXOLITINIB
     Indication: Panniculitis
     Route: 065
     Dates: start: 202011
  17. RUXOLITINIB [Concomitant]
     Active Substance: RUXOLITINIB
     Indication: Panniculitis
     Dosage: LOW-DOSE
     Route: 065
     Dates: start: 202011
  18. RUXOLITINIB [Concomitant]
     Active Substance: RUXOLITINIB
     Indication: Panniculitis
     Route: 065
     Dates: start: 202012

REACTIONS (2)
  - Panniculitis [Recovering/Resolving]
  - Rebound effect [Recovering/Resolving]

NARRATIVE: CASE EVENT DATE: 20200801
